FAERS Safety Report 5489857-3 (Version None)
Quarter: 2007Q4

REPORT INFORMATION
  Report Type: 
  Country: None (occurrence: None)
  Receive Date: 20071017
  Receipt Date: 20071017
  Transmission Date: 20080405
  Serious: No
  Sender: FDA-Public Use
  Company Number: None

PATIENT
  Age: 66 Year
  Sex: Male

DRUGS (1)
  1. AMLODIPINE [Suspect]
     Dates: start: 20060926, end: 20061005

REACTIONS (14)
  - AZOTAEMIA [None]
  - CHOLECYSTITIS [None]
  - CHOLESTASIS [None]
  - ESCHERICHIA INFECTION [None]
  - GALLBLADDER DISORDER [None]
  - HAEMODIALYSIS [None]
  - HAEMOPHILUS INFECTION [None]
  - HEPATOCELLULAR DAMAGE [None]
  - HYPERVOLAEMIA [None]
  - MENTAL STATUS CHANGES [None]
  - PNEUMONIA [None]
  - RENAL FAILURE ACUTE [None]
  - SPUTUM CULTURE POSITIVE [None]
  - SUBDURAL HAEMATOMA [None]
